FAERS Safety Report 5078913-X (Version None)
Quarter: 2006Q3

REPORT INFORMATION
  Report Type: 
  Country: None (occurrence: None)
  Receive Date: 20060808
  Receipt Date: 20060720
  Transmission Date: 20061208
  Serious: Yes (Hospitalization)
  Sender: FDA-Public Use
  Company Number: US200606002660

PATIENT
  Age: 46 Year
  Sex: Male
  Weight: 112.5 kg

DRUGS (3)
  1. ZYPREXA [Suspect]
     Dosage: 20 MG
     Dates: start: 20001228
  2. ARIPIPRAZOLE (ARIPIPRAZOLE) [Concomitant]
  3. METOPROLOL (METOPROLOL) [Concomitant]

REACTIONS (5)
  - DIABETES MELLITUS [None]
  - DIABETIC COMPLICATION [None]
  - INSULIN RESISTANCE [None]
  - KETONURIA [None]
  - MYOCARDIAL ISCHAEMIA [None]
